FAERS Safety Report 16810266 (Version 1)
Quarter: 2019Q3

REPORT INFORMATION
  Report Type: Spontaneous
  Country: CN (occurrence: CN)
  Receive Date: 20190916
  Receipt Date: 20190916
  Transmission Date: 20191005
  Serious: Yes (Other)
  Sender: FDA-Public Use
  Company Number: CN-BAYER-2019-168947

PATIENT

DRUGS (2)
  1. CLARITYNE 10 MG [Suspect]
     Active Substance: LORATADINE
     Indication: RHINITIS ALLERGIC
     Dosage: 0.5 DF, QD
     Route: 048
  2. CLARITYNE 10 MG [Suspect]
     Active Substance: LORATADINE
     Indication: RHINITIS ALLERGIC
     Dosage: 1 DF, QD
     Route: 048

REACTIONS (2)
  - Drug dependence [None]
  - Incorrect dose administered [None]
